FAERS Safety Report 11145358 (Version 1)
Quarter: 2015Q2

REPORT INFORMATION
  Report Type: Spontaneous
  Country: IT (occurrence: IT)
  Receive Date: 20150528
  Receipt Date: 20150528
  Transmission Date: 20150821
  Serious: Yes (Other)
  Sender: FDA-Public Use
  Company Number: IT-TEVA-565461ACC

PATIENT
  Age: 52 Year
  Sex: Female
  Weight: 70 kg

DRUGS (7)
  1. ZESTORETIC - 20 MG + 12,5 MG COMPRESSE - ASTRAZENECA S.P.A. [Concomitant]
     Indication: PRODUCT USED FOR UNKNOWN INDICATION
  2. LASIX [Concomitant]
     Active Substance: FUROSEMIDE
     Indication: PRODUCT USED FOR UNKNOWN INDICATION
  3. CARBOPLATINO TEVA - FLACONE IV 45 ML 10 MG/ML - TEVA PHARMA B.V. [Suspect]
     Active Substance: CARBOPLATIN
     Indication: SMALL CELL LUNG CANCER
     Dosage: 300 MG/M2 CYCLICAL
     Route: 042
     Dates: start: 20150212, end: 20150212
  4. DILATREND - 25 MG COMPRESSE - ROCHE S.P.A. [Concomitant]
     Indication: PRODUCT USED FOR UNKNOWN INDICATION
     Dosage: .5 DF
  5. ETOPOSIDE TEVA - FLACONE 10 ML 20MG/ML - TEVA PHARMA B.V. [Suspect]
     Active Substance: ETOPOSIDE
     Indication: SMALL CELL LUNG CANCER
     Dosage: 100 MG/M2 CYCLICAL
     Dates: start: 20150212
  6. SIVASTIN - 40 MG COMPRESSE RIVESTITE CON FILM [Concomitant]
     Indication: PRODUCT USED FOR UNKNOWN INDICATION
  7. HUMALOG - KWIKPEN 100 U/ML SOLUZIONE INIETTABILE [Concomitant]
     Indication: PRODUCT USED FOR UNKNOWN INDICATION

REACTIONS (2)
  - Tinnitus [Not Recovered/Not Resolved]
  - Myalgia [Not Recovered/Not Resolved]

NARRATIVE: CASE EVENT DATE: 20150413
